FAERS Safety Report 5588206-X (Version None)
Quarter: 2008Q1

REPORT INFORMATION
  Report Type: 
  Country: None (occurrence: None)
  Receive Date: 20080109
  Receipt Date: 20080109
  Transmission Date: 20080703
  Serious: Yes (Hospitalization)
  Sender: FDA-Public Use
  Company Number: None

PATIENT
  Age: 88 Year
  Sex: Male

DRUGS (1)
  1. WARFARIN SODIUM [Suspect]
     Indication: ATRIAL FIBRILLATION
     Dosage: 5/2.5MG OTHER PO
     Route: 048
     Dates: start: 19920101, end: 20070606

REACTIONS (2)
  - FALL [None]
  - SUBDURAL HAEMATOMA [None]
